FAERS Safety Report 9399710 (Version 1)
Quarter: 2013Q3

REPORT INFORMATION
  Report Type: Spontaneous
  Country: NL (occurrence: NL)
  Receive Date: 20130715
  Receipt Date: 20130715
  Transmission Date: 20140515
  Serious: Yes (Other)
  Sender: FDA-Public Use
  Company Number: NL-JNJFOC-20130701495

PATIENT
  Age: 24 Year
  Sex: Female
  Weight: 77 kg

DRUGS (3)
  1. REMICADE [Suspect]
     Indication: CROHN^S DISEASE
     Route: 042
     Dates: start: 201306
  2. REMICADE [Suspect]
     Indication: CROHN^S DISEASE
     Route: 042
     Dates: start: 201205, end: 201301
  3. ARESTAL [Concomitant]
     Route: 065
     Dates: start: 2009

REACTIONS (2)
  - Drug ineffective [Unknown]
  - Heart rate increased [Not Recovered/Not Resolved]
